FAERS Safety Report 24098750 (Version 1)
Quarter: 2024Q3

REPORT INFORMATION
  Report Type: Spontaneous
  Country: US (occurrence: US)
  Receive Date: 20240716
  Receipt Date: 20240716
  Transmission Date: 20241017
  Serious: No
  Sender: NOVO NORDISK
  Company Number: US-NOVOPROD-1178238

PATIENT
  Sex: Female

DRUGS (2)
  1. OZEMPIC [Suspect]
     Active Substance: SEMAGLUTIDE
     Indication: Weight control
     Dosage: 0.50MG
     Route: 058
     Dates: start: 20240115
  2. OZEMPIC [Suspect]
     Active Substance: SEMAGLUTIDE
     Indication: Blood glucose increased
     Dosage: 1 MG
     Route: 058

REACTIONS (9)
  - Headache [Unknown]
  - Feeling abnormal [Unknown]
  - Abdominal distension [Unknown]
  - Constipation [Unknown]
  - Fatigue [Unknown]
  - Nausea [Unknown]
  - Flatulence [Unknown]
  - Abdominal discomfort [Unknown]
  - Extra dose administered [Unknown]
